FAERS Safety Report 9814365 (Version 1)
Quarter: 2014Q1

REPORT INFORMATION
  Report Type: Spontaneous
  Country: US (occurrence: US)
  Receive Date: 20140113
  Receipt Date: 20140113
  Transmission Date: 20141002
  Serious: Yes (Death)
  Sender: FDA-Public Use
  Company Number: US-PFIZER INC-2014006394

PATIENT
  Age: 30 Year
  Sex: Female

DRUGS (2)
  1. ALPRAZOLAM [Suspect]
     Dosage: UNK
     Route: 051
  2. INSULIN [Suspect]
     Dosage: UNK
     Route: 051

REACTIONS (1)
  - Completed suicide [Fatal]
